FAERS Safety Report 7197468-7 (Version None)
Quarter: 2010Q4

REPORT INFORMATION
  Report Type: 
  Country: None (occurrence: None)
  Receive Date: 20101227
  Receipt Date: 20101220
  Transmission Date: 20110411
  Serious: Yes (Death, Hospitalization, Other)
  Sender: FDA-Public Use
  Company Number: JP-CELGENEUS-087-21880-10100908

PATIENT
  Sex: Female
  Weight: 42.8 kg

DRUGS (13)
  1. REVLIMID [Suspect]
     Indication: MULTIPLE MYELOMA
     Route: 048
     Dates: start: 20100914, end: 20101004
  2. LENADEX [Suspect]
     Indication: MULTIPLE MYELOMA
     Route: 048
     Dates: start: 20100914, end: 20100928
  3. ZYLORIC [Concomitant]
     Indication: PROPHYLAXIS
     Route: 048
     Dates: start: 20100310, end: 20101004
  4. DIART [Concomitant]
     Indication: PROPHYLAXIS
     Route: 048
     Dates: start: 20100310, end: 20101004
  5. URSO 250 [Concomitant]
     Indication: PROPHYLAXIS
     Route: 048
     Dates: start: 20100310, end: 20101004
  6. FOIPAN [Concomitant]
     Route: 048
     Dates: start: 20100310, end: 20101004
  7. FOIPAN [Concomitant]
     Indication: PROPHYLAXIS
  8. BERIZYM [Concomitant]
     Indication: PROPHYLAXIS
     Route: 048
     Dates: start: 20100310, end: 20101004
  9. TAKEPRON [Concomitant]
     Indication: PROPHYLAXIS
     Route: 048
     Dates: start: 20100310, end: 20101004
  10. BAKTAR [Concomitant]
     Indication: PROPHYLAXIS
     Route: 048
     Dates: start: 20100310, end: 20101004
  11. PREDONINE [Concomitant]
     Route: 048
     Dates: start: 20100310, end: 20101004
  12. CYTOTEC [Concomitant]
     Indication: PROPHYLAXIS
     Route: 048
     Dates: start: 20100310, end: 20101004
  13. LAXOBERON [Concomitant]
     Indication: CONSTIPATION
     Route: 048
     Dates: start: 20100310, end: 20101004

REACTIONS (5)
  - CARDIAC ARREST [None]
  - HAEMORRHAGE [None]
  - NEUTROPHIL COUNT DECREASED [None]
  - PLATELET COUNT DECREASED [None]
  - PLEURAL EFFUSION [None]
